FAERS Safety Report 23178471 (Version 1)
Quarter: 2023Q4

REPORT INFORMATION
  Report Type: Report from Study
  Country: GB (occurrence: GB)
  Receive Date: 20231113
  Receipt Date: 20231113
  Transmission Date: 20240109
  Serious: Yes (Other)
  Sender: FDA-Public Use
  Company Number: GB-ALXN-A202204809

PATIENT
  Sex: Female

DRUGS (6)
  1. SOLIRIS [Suspect]
     Active Substance: ECULIZUMAB
     Indication: Paroxysmal nocturnal haemoglobinuria
     Dosage: UNK
     Route: 065
     Dates: start: 20100607
  2. SOLIRIS [Suspect]
     Active Substance: ECULIZUMAB
     Dosage: 900 MG, Q2W
     Route: 042
     Dates: start: 20100628
  3. SOLIRIS [Suspect]
     Active Substance: ECULIZUMAB
     Dosage: 1200 MILLIGRAM, Q2W
     Route: 042
  4. FENTANYL [Concomitant]
     Active Substance: FENTANYL\FENTANYL CITRATE
     Indication: Product used for unknown indication
     Dosage: UNK
     Route: 065
  5. HUMAN IMMUNOGLOBULIN G [Concomitant]
     Active Substance: HUMAN IMMUNOGLOBULIN G
     Indication: Product used for unknown indication
     Dosage: UNK
     Route: 065
     Dates: start: 20191112
  6. AMOXICILLIN\CLAVULANATE POTASSIUM [Concomitant]
     Active Substance: AMOXICILLIN\CLAVULANATE POTASSIUM
     Indication: Lower respiratory tract infection
     Dosage: 500 MG, TID
     Route: 065
     Dates: start: 20221110

REACTIONS (17)
  - Aspiration [Unknown]
  - COVID-19 [Recovered/Resolved]
  - Tooth infection [Unknown]
  - Dysphagia [Not Recovered/Not Resolved]
  - Pain [Not Recovered/Not Resolved]
  - Chromaturia [Unknown]
  - Localised infection [Not Recovered/Not Resolved]
  - Device issue [Unknown]
  - Arthropod bite [Recovering/Resolving]
  - Productive cough [Unknown]
  - Oral candidiasis [Not Recovered/Not Resolved]
  - Blister [Not Recovered/Not Resolved]
  - Scab [Not Recovered/Not Resolved]
  - Fatigue [Not Recovered/Not Resolved]
  - Myalgia [Not Recovered/Not Resolved]
  - Infection [Not Recovered/Not Resolved]
  - Erythema [Not Recovered/Not Resolved]

NARRATIVE: CASE EVENT DATE: 20220101
